FAERS Safety Report 12068931 (Version 1)
Quarter: 2016Q1

REPORT INFORMATION
  Report Type: Spontaneous
  Country: FR (occurrence: FR)
  Receive Date: 20160211
  Receipt Date: 20160211
  Transmission Date: 20160526
  Serious: Yes (Hospitalization, Other)
  Sender: FDA-Public Use
  Company Number: FR-PFIZER INC-2016065383

PATIENT
  Age: 66 Year
  Sex: Female

DRUGS (11)
  1. INEXIUM /01479302/ [Suspect]
     Active Substance: ESOMEPRAZOLE MAGNESIUM
     Dosage: 40 MG, 1X/DAY
     Route: 048
  2. ALDACTONE [Suspect]
     Active Substance: SPIRONOLACTONE
     Indication: HYPERTENSION
     Dosage: 25 MG, 1X/DAY
     Route: 048
  3. GLUCOPHAGE [Suspect]
     Active Substance: METFORMIN HYDROCHLORIDE
     Indication: TYPE 2 DIABETES MELLITUS
     Dosage: 850 MG IN THE MORNING AND IN THE EVENING + 500 MG AT NOON
     Route: 048
  4. CIRKAN [Suspect]
     Active Substance: DESONIDE\LIDOCAINE
     Dosage: UNK, AS NEEDED
     Route: 048
     Dates: end: 20151119
  5. HEMIDAONIL [Suspect]
     Active Substance: GLYBURIDE
     Indication: TYPE 2 DIABETES MELLITUS
     Dosage: 2.5 MG, 2X/DAY
     Route: 048
  6. SPASFON /00765801/ [Suspect]
     Active Substance: PHLOROGLUCINOL\1,3,5-TRIMETHOXYBENZENE
     Indication: CONSTIPATION
     Dosage: UNK, AS NEEDED
     Route: 048
     Dates: end: 20151119
  7. PENTASA [Suspect]
     Active Substance: MESALAMINE
     Indication: RECTAL HAEMORRHAGE
     Dosage: 2 G, 2X/DAY
     Route: 048
  8. LOPRESSOR [Suspect]
     Active Substance: METOPROLOL TARTRATE
     Indication: HYPERTENSION
     Dosage: 200 MG, 1X/DAY
     Route: 048
  9. JANUVIA [Suspect]
     Active Substance: SITAGLIPTIN PHOSPHATE
     Indication: TYPE 2 DIABETES MELLITUS
     Dosage: 100 MG, 2X/DAY
     Route: 048
  10. IMODIUM [Suspect]
     Active Substance: LOPERAMIDE HYDROCHLORIDE
     Indication: DIARRHOEA
     Dosage: 2 MG, 3X/DAY
     Route: 048
     Dates: end: 20151119
  11. MOXYDAR [Suspect]
     Active Substance: ALUMINUM HYDROXIDE\ALUMINUM PHOSPHATE\GUAR GUM\MAGNESIUM HYDROXIDE
     Dosage: UNK, AS NEEDED
     Route: 048
     Dates: end: 20151119

REACTIONS (3)
  - Pancytopenia [Not Recovered/Not Resolved]
  - Haemorrhoidal haemorrhage [Unknown]
  - Vitamin B12 decreased [Not Recovered/Not Resolved]

NARRATIVE: CASE EVENT DATE: 201511
